FAERS Safety Report 8987598 (Version 1)
Quarter: 2012Q4

REPORT INFORMATION
  Report Type: 
  Country: IL (occurrence: IL)
  Receive Date: 20121227
  Receipt Date: 20121227
  Transmission Date: 20130627
  Serious: Yes (Other)
  Sender: FDA-Public Use
  Company Number: IL-MPIJNJ-2011-01970

PATIENT

DRUGS (4)
  1. VELCADE [Suspect]
     Indication: MULTIPLE MYELOMA
     Dosage: 1.3 mg/m2, Cyclic
     Route: 042
  2. DEXAMETHASONE [Suspect]
     Indication: MULTIPLE MYELOMA
     Dosage: 40 mg, Cyclic
  3. MELPHALAN [Suspect]
     Indication: MULTIPLE MYELOMA
     Dosage: 200 mg/m2, Cyclic
  4. ACYCLOVIR                          /00587301/ [Concomitant]
     Indication: HERPES ZOSTER
     Dosage: 200 mg, q6hr

REACTIONS (1)
  - Human herpesvirus 6 infection [Recovered/Resolved]
